FAERS Safety Report 17491287 (Version 3)
Quarter: 2020Q4

REPORT INFORMATION
  Report Type: Spontaneous
  Country: US (occurrence: US)
  Receive Date: 20200303
  Receipt Date: 20201124
  Transmission Date: 20210113
  Serious: Yes (Hospitalization, Other)
  Sender: FDA-Public Use
  Company Number: US-SA-2020SA055057

PATIENT

DRUGS (3)
  1. DUPIXENT [Suspect]
     Active Substance: DUPILUMAB
     Dosage: 300 MG, QOW
     Route: 058
  2. DUPIXENT [Suspect]
     Active Substance: DUPILUMAB
     Indication: DERMATITIS ATOPIC
     Dosage: 300 MG, QOW
     Route: 058
     Dates: start: 20191026, end: 20191221
  3. FIRMAGON [Concomitant]
     Active Substance: DEGARELIX ACETATE

REACTIONS (2)
  - Rash vesicular [Unknown]
  - Bacterial sepsis [Unknown]

NARRATIVE: CASE EVENT DATE: 201912
